FAERS Safety Report 8743580 (Version 2)
Quarter: 2012Q4

REPORT INFORMATION
  Report Type: 
  Country: US (occurrence: US)
  Receive Date: 20120824
  Receipt Date: 20121022
  Transmission Date: 20130627
  Serious: No
  Sender: FDA-Public Use
  Company Number: US-009507513-1208USA008382

PATIENT
  Age: 22 None
  Sex: Female
  Weight: 97.96 kg

DRUGS (1)
  1. SAPHRIS [Suspect]
     Indication: SCHIZOAFFECTIVE DISORDER
     Dosage: 10 mg, hs
     Route: 060
     Dates: start: 20120706

REACTIONS (3)
  - Dissociation [Recovered/Resolved]
  - Abnormal behaviour [Recovered/Resolved]
  - Inappropriate schedule of drug administration [Unknown]
